FAERS Safety Report 7601528-3 (Version None)
Quarter: 2011Q3

REPORT INFORMATION
  Report Type: 
  Country: None (occurrence: None)
  Receive Date: 20110711
  Receipt Date: 20110627
  Transmission Date: 20111222
  Serious: Yes (Other)
  Sender: FDA-Public Use
  Company Number: PHHY2011US49204

PATIENT
  Age: 21 Year
  Sex: Female

DRUGS (5)
  1. GEODON [Suspect]
     Indication: BIPOLAR DISORDER
     Dosage: 80 MG, UNK
     Route: 048
     Dates: start: 20110224, end: 20110310
  2. TRILEPTAL [Suspect]
     Indication: MOOD SWINGS
     Dosage: UNK
     Dates: start: 20100905, end: 20110224
  3. GEODON [Suspect]
     Indication: MOOD SWINGS
  4. TRILEPTAL [Suspect]
     Indication: IMPULSIVE BEHAVIOUR
  5. LORAZEPAM [Concomitant]
     Indication: ANXIETY
     Dosage: UNK
     Dates: start: 20110224, end: 20110317

REACTIONS (10)
  - FALL [None]
  - MUSCULOSKELETAL STIFFNESS [None]
  - SOMNOLENCE [None]
  - TARDIVE DYSKINESIA [None]
  - FEELING ABNORMAL [None]
  - DRUG WITHDRAWAL SYNDROME [None]
  - GAIT DISTURBANCE [None]
  - GASTROINTESTINAL DISORDER [None]
  - CONFUSIONAL STATE [None]
  - TREMOR [None]
